FAERS Safety Report 4394518-8 (Version None)
Quarter: 2004Q3

REPORT INFORMATION
  Report Type: 
  Country: None (occurrence: None)
  Receive Date: 20040709
  Receipt Date: 20040709
  Transmission Date: 20050211
  Serious: Yes (Disabling)
  Sender: FDA-Public Use
  Company Number: None

PATIENT
  Sex: Male
  Weight: 98.4 kg

DRUGS (7)
  1. GAMMAGARD [Suspect]
     Indication: CHRONIC INFLAMMATORY DEMYELINATING POLYRADICULONEUROPATHY
     Dosage: 1 GRAM/K EVERY 2 WE INTRAVENOUS
     Route: 042
     Dates: start: 20031017, end: 20040702
  2. GAMMAGARD [Suspect]
  3. ACETAMINOPHEN [Concomitant]
  4. DIPHENHYDRAMINE [Concomitant]
  5. MULTIPLE VITAMIN [Concomitant]
  6. IBUPROFEN [Concomitant]
  7. LIDEX CREAM [Concomitant]

REACTIONS (2)
  - COMA [None]
  - SOMNOLENCE [None]
